FAERS Safety Report 9050314 (Version 3)
Quarter: 2014Q1

REPORT INFORMATION
  Report Type: Report from Study
  Country: BR (occurrence: BR)
  Receive Date: 20130205
  Receipt Date: 20140116
  Transmission Date: 20141002
  Serious: Yes (Hospitalization, Other)
  Sender: FDA-Public Use
  Company Number: PHHY2013BR010746

PATIENT
  Sex: Female

DRUGS (8)
  1. ACLASTA [Suspect]
     Indication: OSTEOPOROSIS
     Dosage: 5 MG,
     Route: 042
     Dates: start: 2012
  2. CALCIUM D3 [Suspect]
     Indication: OSTEOPOROSIS
     Dosage: 600 MG, UNK
     Dates: start: 2013
  3. SIMVASTATIN [Concomitant]
     Dosage: MORE THAN 2 YEARS
  4. SELOZOK [Concomitant]
     Dosage: MORE THAN 2 YEARS
  5. TAPAZOL [Concomitant]
  6. ADDERA D3 [Concomitant]
     Dosage: MORE THAN 2 YEARS
  7. CAT^S CLAW [Concomitant]
     Dosage: MORE THAN 2 YEARS
  8. SOMALGIN [Concomitant]
     Dosage: MORE THAN 2 YEARS

REACTIONS (4)
  - Fall [Recovering/Resolving]
  - Spinal fracture [Recovering/Resolving]
  - Abdominal pain upper [Recovering/Resolving]
  - Dizziness [Unknown]
